FAERS Safety Report 21754422 (Version 1)
Quarter: 2022Q4

REPORT INFORMATION
  Report Type: Spontaneous
  Country: PL (occurrence: PL)
  Receive Date: 20221220
  Receipt Date: 20221220
  Transmission Date: 20230113
  Serious: Yes (Hospitalization)
  Sender: FDA-Public Use
  Company Number: None

PATIENT
  Age: 53 Year
  Sex: Female
  Weight: 70 kg

DRUGS (1)
  1. SULFASALAZINE [Suspect]
     Active Substance: SULFASALAZINE
     Indication: Crohn^s disease
     Dosage: 500 MG, 2X/DAY
     Route: 048
     Dates: start: 20180818, end: 20180830

REACTIONS (4)
  - Pyrexia [Recovering/Resolving]
  - Hyperpyrexia [Recovering/Resolving]
  - Mucosal inflammation [Recovering/Resolving]
  - Toxic epidermal necrolysis [Recovering/Resolving]
